FAERS Safety Report 4529349-9 (Version None)
Quarter: 2004Q4

REPORT INFORMATION
  Report Type: 
  Country: None (occurrence: None)
  Receive Date: 20041202
  Receipt Date: 20040817
  Transmission Date: 20050328
  Serious: No
  Sender: FDA-Public Use
  Company Number: 200420169BWH

PATIENT
  Age: 57 Year
  Sex: Male

DRUGS (7)
  1. LEVITRA [Suspect]
     Indication: ERECTILE DYSFUNCTION
     Dosage: 20 MG, PRN, ORAL
     Route: 048
  2. FIORNIAL [Concomitant]
  3. KLONOPIN [Concomitant]
  4. LOTREL [Concomitant]
  5. LEXAPRO [Concomitant]
  6. BUPROPION HCL [Concomitant]
  7. VIAGRA [Concomitant]

REACTIONS (1)
  - ERECTILE DYSFUNCTION [None]
